FAERS Safety Report 20279341 (Version 2)
Quarter: 2022Q1

REPORT INFORMATION
  Report Type: Report from Study
  Country: IT (occurrence: IT)
  Receive Date: 20220103
  Receipt Date: 20220224
  Transmission Date: 20220423
  Serious: Yes (Other)
  Sender: FDA-Public Use
  Company Number: IT-UCBSA-2021060465

PATIENT
  Sex: Male

DRUGS (1)
  1. LACOSAMIDE [Suspect]
     Active Substance: LACOSAMIDE
     Indication: Product used for unknown indication
     Dosage: 50MG, UNK

REACTIONS (3)
  - Haematochezia [Unknown]
  - Illness [Unknown]
  - Adverse drug reaction [Unknown]
